FAERS Safety Report 7608763-9 (Version None)
Quarter: 2011Q3

REPORT INFORMATION
  Report Type: 
  Country: None (occurrence: None)
  Receive Date: 20110714
  Receipt Date: 20110714
  Transmission Date: 20111222
  Serious: Yes (Hospitalization)
  Sender: FDA-Public Use
  Company Number: None

PATIENT
  Sex: Female
  Weight: 16.3 kg

DRUGS (1)
  1. GEMCITABINE [Suspect]
     Indication: OSTEOSARCOMA METASTATIC
     Dosage: 630 MG -900 MG/M2-
     Route: 041
     Dates: start: 20110411, end: 20110411

REACTIONS (10)
  - LEUKOENCEPHALOPATHY [None]
  - BLINDNESS [None]
  - URINARY INCONTINENCE [None]
  - AMNESIA [None]
  - HEADACHE [None]
  - VOMITING [None]
  - BLEPHAROSPASM [None]
  - FAECAL INCONTINENCE [None]
  - ABNORMAL BEHAVIOUR [None]
  - PARTIAL SEIZURES [None]
